FAERS Safety Report 24646585 (Version 1)
Quarter: 2024Q4

REPORT INFORMATION
  Report Type: Spontaneous
  Country: JP (occurrence: JP)
  Receive Date: 20241121
  Receipt Date: 20241121
  Transmission Date: 20250114
  Serious: Yes (Other)
  Sender: MYLAN
  Company Number: JP-MYLANLABS-2024M1103463

PATIENT
  Age: 78 Year
  Sex: Female

DRUGS (7)
  1. ACETAMINOPHEN [Suspect]
     Active Substance: ACETAMINOPHEN
     Indication: Pain
     Dosage: 1800 MILLIGRAM, QD
     Route: 065
  2. DOXORUBICIN [Suspect]
     Active Substance: DOXORUBICIN
     Indication: Sarcoma uterus
     Dosage: RECEIVED 3 COURSES
     Route: 065
  3. DOXORUBICIN [Suspect]
     Active Substance: DOXORUBICIN
     Indication: Metastases to liver
  4. LOXOPROFEN [Suspect]
     Active Substance: LOXOPROFEN
     Indication: Pain
     Dosage: 180 MILLIGRAM, QD
     Route: 065
  5. NALDEMEDINE [Suspect]
     Active Substance: NALDEMEDINE
     Indication: Constipation
     Dosage: 0.2 MILLIGRAM, QD
     Route: 065
  6. OXYCODONE HYDROCHLORIDE [Concomitant]
     Active Substance: OXYCODONE HYDROCHLORIDE
     Indication: Pain
     Dosage: 10 MILLIGRAM, QD
     Route: 065
  7. MAGNESIUM OXIDE [Concomitant]
     Active Substance: MAGNESIUM OXIDE
     Indication: Constipation
     Dosage: 990 MILLIGRAM, QD
     Route: 065

REACTIONS (1)
  - Drug ineffective [Unknown]
